FAERS Safety Report 7573690-2 (Version None)
Quarter: 2011Q2

REPORT INFORMATION
  Report Type: 
  Country: None (occurrence: None)
  Receive Date: 20110627
  Receipt Date: 20110610
  Transmission Date: 20111010
  Serious: No
  Sender: FDA-Public Use
  Company Number: US-B.I. PHARMACEUTICALS,INC./RIDGEFIELD-2011-BP-15206BP

PATIENT
  Age: 83 Year
  Sex: Male

DRUGS (4)
  1. DIAZIDE [Concomitant]
     Indication: HYPERTENSION
  2. PRADAXA [Suspect]
     Indication: ATRIAL FIBRILLATION
     Dosage: 300 MG
     Route: 048
     Dates: start: 20110501
  3. NEXIUM [Concomitant]
     Indication: GASTROOESOPHAGEAL REFLUX DISEASE
  4. PERCOCET [Concomitant]
     Indication: SPINAL COLUMN STENOSIS

REACTIONS (3)
  - URINE OUTPUT DECREASED [None]
  - FLANK PAIN [None]
  - INTERNATIONAL NORMALISED RATIO [None]
